FAERS Safety Report 5870683-8 (Version None)
Quarter: 2008Q3

REPORT INFORMATION
  Report Type: 
  Country: None (occurrence: None)
  Receive Date: 20080904
  Receipt Date: 20080904
  Transmission Date: 20090109
  Serious: Yes (Other)
  Sender: FDA-Public Use
  Company Number: PHEH1997US03876

PATIENT
  Sex: Female
  Weight: 91 kg

DRUGS (7)
  1. SANDIMMUNE [Suspect]
     Route: 048
     Dates: start: 19951011
  2. AZATHIOPRINE [Concomitant]
  3. PREDNISONE [Concomitant]
  4. NIZATIDINE [Concomitant]
  5. NIFEDIPINE [Concomitant]
  6. PRAVASTATIN [Concomitant]
  7. MULTI-VITAMINS [Concomitant]

REACTIONS (1)
  - SQUAMOUS CELL CARCINOMA [None]
